FAERS Safety Report 11372757 (Version 1)
Quarter: 2015Q3

REPORT INFORMATION
  Report Type: Spontaneous
  Country: US (occurrence: US)
  Receive Date: 20150811
  Receipt Date: 20150811
  Transmission Date: 20151125
  Serious: No
  Sender: FDA-Public Use
  Company Number: US-ELI_LILLY_AND_COMPANY-US201106001781

PATIENT
  Age: 59 Year
  Sex: Male

DRUGS (2)
  1. AXIRON [Suspect]
     Active Substance: TESTOSTERONE
     Indication: ERECTILE DYSFUNCTION
     Dosage: 60 MG, 2 PUMPS UNDER EACH ARMPIT
     Route: 065
  2. AXIRON [Suspect]
     Active Substance: TESTOSTERONE
     Dosage: UNK, 1 PUMP UNDER EACH ARMPIT

REACTIONS (3)
  - Pain in extremity [Unknown]
  - Off label use [Unknown]
  - Oedema peripheral [Unknown]
